FAERS Safety Report 14274926 (Version 3)
Quarter: 2018Q3

REPORT INFORMATION
  Report Type: Report from Study
  Country: US (occurrence: US)
  Receive Date: 20171212
  Receipt Date: 20180803
  Transmission Date: 20181010
  Serious: Yes (Other)
  Sender: FDA-Public Use
  Company Number: US-THERATECHNOLOGIES, INC.-TH-2017-00379

PATIENT
  Sex: Male
  Weight: 120.64 kg

DRUGS (24)
  1. EGRIFTA [Suspect]
     Active Substance: TESAMORELIN
     Dosage: 1MG VIAL, QAM
     Dates: start: 201711, end: 201804
  2. CYCLOBENZAPRINE. [Concomitant]
     Active Substance: CYCLOBENZAPRINE
     Dosage: 5 MG MILLIGRAM(S), TID
  3. ANDROGEL [Concomitant]
     Active Substance: TESTOSTERONE
     Dosage: 1.62?20.25MG/1.25GM QAM
  4. ROPINIROLE. [Concomitant]
     Active Substance: ROPINIROLE
     Dosage: 0.5 MG MILLIGRAM(S), TID
  5. AZILECT [Concomitant]
     Active Substance: RASAGILINE MESYLATE
     Dosage: 1 MG MILLIGRAM(S), QD
  6. PHENTERMINE. [Concomitant]
     Active Substance: PHENTERMINE
     Dosage: 37.5 MG MILLIGRAM(S), BID
  7. FINASTERIDE. [Concomitant]
     Active Substance: FINASTERIDE
     Dosage: 5 MG MILLIGRAM(S), HS
  8. NASONEX [Concomitant]
     Active Substance: MOMETASONE FUROATE
     Dosage: 50 MCG 17G HS
  9. PROAIR HFA [Concomitant]
     Active Substance: ALBUTEROL SULFATE
     Dosage: 2 PUFFS, QID
  10. NUVIGIL [Concomitant]
     Active Substance: ARMODAFINIL
     Dosage: 250 MG MILLIGRAM(S), QD
  11. TEMAZEPAM. [Concomitant]
     Active Substance: TEMAZEPAM
     Dosage: 15 MG MILLIGRAM(S), QD 2X IF NEEDED DAILY
  12. CRESTOR [Concomitant]
     Active Substance: ROSUVASTATIN CALCIUM
     Dosage: 20 MG MILLIGRAM(S), QD
  13. LOSARTAN AND HYDROCHLOROTHIAZIDE [Concomitant]
     Active Substance: HYDROCHLOROTHIAZIDE\LOSARTAN POTASSIUM
     Dosage: 100/12.5 MG, QD
  14. ODEFSEY [Concomitant]
     Active Substance: EMTRICITABINE\RILPIVIRINE HYDROCHLORIDE\TENOFOVIR ALAFENAMIDE FUMARATE
     Dosage: UNK UNK, QD
  15. TAMSULOSIN [Concomitant]
     Active Substance: TAMSULOSIN
     Dosage: 0.04 MG MILLIGRAM(S), QD
  16. BUMETANIDE. [Concomitant]
     Active Substance: BUMETANIDE
     Dosage: 2 MG MILLIGRAM(S), QD
  17. CELECOXIB. [Concomitant]
     Active Substance: CELECOXIB
     Dosage: 200 MG MILLIGRAM(S), QD
  18. CLONAZEPAM. [Concomitant]
     Active Substance: CLONAZEPAM
     Dosage: 0.5 MG MILLIGRAM(S), BEDTIME
  19. TUDORZA PRESSAIR [Concomitant]
     Active Substance: ACLIDINIUM BROMIDE
     Dosage: 1 PUFF, BID
  20. VITAMIN D                          /00107901/ [Concomitant]
     Active Substance: ERGOCALCIFEROL
     Dosage: 50000 IU, MON/THURS
  21. CARBIDOPA AND LEVODOPA [Concomitant]
     Active Substance: CARBIDOPA\LEVODOPA
     Dosage: 25?100 MG, QID
  22. DICLOFENAC SODIUM TOPICAL GEL [Concomitant]
     Dosage: 3 % PERCENT, TID
     Route: 061
  23. ACETAMINOPHEN W/HYDROCODONE [Concomitant]
     Active Substance: ACETAMINOPHEN\HYDROCODONE
     Dosage: 7.5/325, TID
  24. MUPIROCIN. [Concomitant]
     Active Substance: MUPIROCIN
     Dosage: 22 G GRAM(S), BID
     Route: 061

REACTIONS (2)
  - Blood glucose increased [Recovering/Resolving]
  - Injection site pruritus [Not Recovered/Not Resolved]

NARRATIVE: CASE EVENT DATE: 2017
